FAERS Safety Report 6040269-3 (Version None)
Quarter: 2009Q1

REPORT INFORMATION
  Report Type: 
  Country: None (occurrence: None)
  Receive Date: 20090116
  Receipt Date: 20080205
  Transmission Date: 20090719
  Serious: No
  Sender: FDA-Public Use
  Company Number: US-BRISTOL-MYERS SQUIBB COMPANY-14065106

PATIENT
  Age: 53 Year
  Sex: Female
  Weight: 104 kg

DRUGS (4)
  1. ABILIFY [Suspect]
     Indication: BIPOLAR DISORDER
     Dosage: DRUG DISCONTINUED,RESTARTED ON 04-FEB-2008 AT 2MG/DAY
     Route: 048
     Dates: start: 20071201
  2. SEROQUEL [Suspect]
  3. ACIPHEX [Concomitant]
  4. ATIVAN [Concomitant]

REACTIONS (1)
  - OEDEMA PERIPHERAL [None]
